FAERS Safety Report 7720483-9 (Version None)
Quarter: 2011Q3

REPORT INFORMATION
  Report Type: 
  Country: None (occurrence: None)
  Receive Date: 20110831
  Receipt Date: 20110620
  Transmission Date: 20111222
  Serious: No
  Sender: FDA-Public Use
  Company Number: US-KINGPHARMUSA00001-K201100738

PATIENT
  Sex: Male

DRUGS (2)
  1. PENICILLIN G PROCAINE [Suspect]
     Dosage: UNK
     Dates: start: 20110602, end: 20110606
  2. ALLEGRA [Suspect]
     Indication: HYPERSENSITIVITY
     Dosage: 30 MG, QD
     Route: 048
     Dates: start: 20110606

REACTIONS (1)
  - HEAT RASH [None]
